FAERS Safety Report 20659884 (Version 1)
Quarter: 2022Q1

REPORT INFORMATION
  Report Type: Spontaneous
  Country: CA (occurrence: CA)
  Receive Date: 20220331
  Receipt Date: 20220331
  Transmission Date: 20220423
  Serious: Yes (Other)
  Sender: FDA-Public Use
  Company Number: CA-TEVA-2022-CA-2021125

PATIENT
  Sex: Male

DRUGS (10)
  1. CLONAZEPAM [Suspect]
     Active Substance: CLONAZEPAM
     Indication: Panic attack
     Route: 065
  2. BACLOFEN [Concomitant]
     Active Substance: BACLOFEN
  3. GRAVOL [Concomitant]
     Active Substance: DIMENHYDRINATE
  4. HYDROMORPHONE [Concomitant]
     Active Substance: HYDROMORPHONE
  5. PANTOPRAZOLE [Concomitant]
     Active Substance: PANTOPRAZOLE
  6. PREGABALIN [Concomitant]
     Active Substance: PREGABALIN
  7. TRAMADOL HYDROCHLORIDE [Concomitant]
     Active Substance: TRAMADOL HYDROCHLORIDE
  8. VITAMIN B6 [Concomitant]
     Active Substance: PYRIDOXINE HYDROCHLORIDE
  9. VITAMIN C [Concomitant]
     Active Substance: ASCORBIC ACID
  10. VYVANSE [Concomitant]
     Active Substance: LISDEXAMFETAMINE DIMESYLATE

REACTIONS (37)
  - Acne [Unknown]
  - Acne [Unknown]
  - Aggression [Unknown]
  - Agitation [Unknown]
  - Anxiety [Unknown]
  - Back pain [Unknown]
  - Blindness [Unknown]
  - Constipation [Unknown]
  - Depression [Unknown]
  - Diplopia [Unknown]
  - Dizziness [Unknown]
  - Dry mouth [Unknown]
  - Fatigue [Unknown]
  - Feeling abnormal [Unknown]
  - Feeling abnormal [Unknown]
  - Hypoaesthesia [Unknown]
  - Infusion related reaction [Unknown]
  - Intentional self-injury [Unknown]
  - Localised infection [Unknown]
  - Malaise [Unknown]
  - Muscle spasms [Unknown]
  - Muscle spasticity [Unknown]
  - Nasopharyngitis [Unknown]
  - Nausea [Unknown]
  - Neuralgia [Unknown]
  - Pain [Unknown]
  - Pain in extremity [Unknown]
  - Panic attack [Unknown]
  - Penis injury [Unknown]
  - Restless legs syndrome [Unknown]
  - Sedation [Unknown]
  - Seizure [Unknown]
  - Skin abrasion [Unknown]
  - Skin laceration [Unknown]
  - Sleep disorder [Unknown]
  - Tinea pedis [Unknown]
  - Visual impairment [Unknown]
